FAERS Safety Report 7408582-2 (Version None)
Quarter: 2011Q2

REPORT INFORMATION
  Report Type: 
  Country: None (occurrence: None)
  Receive Date: 20110412
  Receipt Date: 20110408
  Transmission Date: 20111010
  Serious: Yes (Hospitalization)
  Sender: FDA-Public Use
  Company Number: US-PFIZER INC-2011066245

PATIENT
  Sex: Male
  Weight: 87.982 kg

DRUGS (12)
  1. FLUOROURACIL [Suspect]
     Indication: COLORECTAL CANCER
     Dosage: 892 MG, EVERY 2 WEEKS
     Route: 040
     Dates: start: 20090415
  2. FLUOROURACIL [Suspect]
     Dosage: 5352 MG, 24H INFUSION
     Route: 041
     Dates: start: 20090415
  3. DECADRON [Concomitant]
     Dosage: 10, EVERY 2 WEEKS
     Route: 042
     Dates: start: 20090415
  4. PROCRIT [Concomitant]
     Indication: ANAEMIA
     Dosage: 40 IU, Q 2 WEEKS
     Dates: start: 20091120
  5. PEPCID [Concomitant]
     Indication: GASTROOESOPHAGEAL REFLUX DISEASE
     Dosage: 40 MG, 1X/DAY
     Dates: start: 20091202
  6. NEULASTA [Concomitant]
     Indication: NEUTROPENIA
     Dosage: 6 MG, EVERY 2 WEEKS
     Dates: start: 20090807
  7. FOLINIC ACID [Suspect]
     Indication: COLORECTAL CANCER
     Dosage: 892 MG, EVERY 2 WEEKS
     Dates: start: 20090415
  8. SUNITINIB MALATE [Suspect]
     Indication: COLORECTAL CANCER
     Dosage: 37.5 MG, 1X/DAY
     Route: 048
     Dates: start: 20091111, end: 20091208
  9. THORAZINE [Suspect]
     Indication: HICCUPS
     Dosage: 25 MG, EVERY 6 HOURS
     Dates: start: 20091207, end: 20091208
  10. REGLAN [Concomitant]
     Indication: HICCUPS
     Dosage: 10 MG, 2X/DAY
     Dates: start: 20091202, end: 20091207
  11. FLUTICASONE [Concomitant]
     Indication: HYPERSENSITIVITY
     Dosage: 50 MG, 2X/DAY
     Route: 045
     Dates: start: 20090820
  12. OXALIPLATIN [Suspect]
     Indication: COLORECTAL CANCER
     Dosage: 190 MG, EVERY 2 WEEKS
     Route: 042
     Dates: start: 20090415

REACTIONS (2)
  - FEBRILE NEUTROPENIA [None]
  - ADVERSE REACTION [None]
